FAERS Safety Report 6013067-4 (Version None)
Quarter: 2008Q4

REPORT INFORMATION
  Report Type: 
  Country: None (occurrence: None)
  Receive Date: 20081219
  Receipt Date: 20081118
  Transmission Date: 20090506
  Serious: No
  Sender: FDA-Public Use
  Company Number: US-BAYER-200838949NA

PATIENT
  Sex: Male

DRUGS (2)
  1. AVELOX [Suspect]
     Indication: DRUG USE FOR UNKNOWN INDICATION
  2. SOTALOL HCL [Interacting]
     Indication: DRUG USE FOR UNKNOWN INDICATION

REACTIONS (4)
  - FATIGUE [None]
  - GASTROINTESTINAL DISORDER [None]
  - NECK PAIN [None]
  - PHARYNGITIS [None]
